FAERS Safety Report 9397849 (Version 2)
Quarter: 2013Q3

REPORT INFORMATION
  Report Type: Spontaneous
  Country: FR (occurrence: FR)
  Receive Date: 20130712
  Receipt Date: 20130723
  Transmission Date: 20140515
  Serious: Yes (Life-Threatening)
  Sender: FDA-Public Use
  Company Number: FR-PFIZER INC-2013201054

PATIENT
  Age: 39 Year
  Sex: Female

DRUGS (6)
  1. DALACINE [Suspect]
     Indication: PROPHYLAXIS
     Dosage: 600 MG, 1X/DAY
     Route: 042
     Dates: start: 20130312
  2. CEFOTAXIME [Suspect]
     Indication: PROPHYLAXIS
     Dosage: 2 G, 1X/DAY
     Route: 042
     Dates: start: 20130312
  3. NAROPIN [Suspect]
     Dosage: 2 G, 1X/DAY
     Route: 042
     Dates: start: 20130312
  4. LEVOTHYROX [Concomitant]
  5. SELOKEN [Concomitant]
     Indication: HYPERTENSION
  6. CERAZETTE [Concomitant]

REACTIONS (4)
  - Hypersensitivity [Recovered/Resolved]
  - Hypotension [Recovered/Resolved]
  - Bradycardia [Recovered/Resolved]
  - Respiratory distress [Recovered/Resolved]
